FAERS Safety Report 4416207-3 (Version None)
Quarter: 2004Q3

REPORT INFORMATION
  Report Type: 
  Country: None (occurrence: None)
  Receive Date: 20040805
  Receipt Date: 20040504
  Transmission Date: 20050211
  Serious: Yes (Death, Hospitalization)
  Sender: FDA-Public Use
  Company Number: US-AMGEN-US075240

PATIENT
  Sex: Male
  Weight: 89.9 kg

DRUGS (15)
  1. ARANESP [Suspect]
     Indication: ANAEMIA OF MALIGNANT DISEASE
     Route: 058
     Dates: start: 20040213
  2. CARBOPLATIN [Concomitant]
     Dates: start: 20040106, end: 20040326
  3. ETOPOSIDE [Concomitant]
     Dates: start: 20040106, end: 20040326
  4. NAVELBINE [Concomitant]
     Dates: start: 20040420, end: 20040511
  5. ANZEMET [Concomitant]
     Dates: start: 20040106, end: 20040326
  6. DECADRON [Concomitant]
     Dates: start: 20040106, end: 20040326
  7. LEVOXYL [Concomitant]
  8. GLUCOTROL [Concomitant]
  9. GLYBURIDE [Concomitant]
  10. CALCIUM [Concomitant]
  11. ALBUTEROL [Concomitant]
  12. COUMADIN [Concomitant]
  13. LASIX [Concomitant]
  14. PREDNISONE [Concomitant]
  15. NEULASTA [Concomitant]
     Indication: CHEMOTHERAPY
     Dates: start: 20040511

REACTIONS (4)
  - ARRHYTHMIA [None]
  - ASTHENIA [None]
  - DEATH [None]
  - DRUG INEFFECTIVE [None]
